FAERS Safety Report 9305651 (Version 1)
Quarter: 2013Q2

REPORT INFORMATION
  Report Type: Spontaneous
  Country: IT (occurrence: IT)
  Receive Date: 20130523
  Receipt Date: 20130523
  Transmission Date: 20140414
  Serious: Yes (Other)
  Sender: FDA-Public Use
  Company Number: IT-PFIZER INC-2013155105

PATIENT
  Age: 82 Year
  Sex: Female

DRUGS (3)
  1. XANAX [Suspect]
     Dosage: 1 DF, TOTAL
     Route: 048
     Dates: start: 20130325, end: 20130325
  2. PAROXETINE [Concomitant]
     Route: 048
  3. MEDROL [Concomitant]
     Route: 048

REACTIONS (3)
  - Medication error [Recovered/Resolved]
  - Confusional state [Recovering/Resolving]
  - Sopor [Recovering/Resolving]
